FAERS Safety Report 16921156 (Version 2)
Quarter: 2019Q4

REPORT INFORMATION
  Report Type: Spontaneous
  Country: ES (occurrence: ES)
  Receive Date: 20191015
  Receipt Date: 20191018
  Transmission Date: 20200122
  Serious: Yes (Hospitalization)
  Sender: FDA-Public Use
  Company Number: ES-US WORLDMEDS, LLC-USW201910-001942

PATIENT
  Age: 53 Year
  Sex: Male

DRUGS (2)
  1. APOMORPHINE (APOMORPHINE) [Suspect]
     Active Substance: APOMORPHINE
     Indication: PARKINSON^S DISEASE
     Route: 058
  2. LEVODOPA/BENSERAZIDE [Concomitant]
     Active Substance: BENSERAZIDE\LEVODOPA

REACTIONS (2)
  - Staphylococcal infection [Unknown]
  - Panniculitis [Unknown]
